FAERS Safety Report 6054653-5 (Version None)
Quarter: 2009Q1

REPORT INFORMATION
  Report Type: 
  Country: None (occurrence: None)
  Receive Date: 20090128
  Receipt Date: 20090116
  Transmission Date: 20090719
  Serious: Yes (Death)
  Sender: FDA-Public Use
  Company Number: US-RANBAXY-2009RR-21053

PATIENT
  Age: 39 Year
  Sex: Female

DRUGS (6)
  1. AMITRIPTYLINE HCL [Suspect]
     Indication: COMPLETED SUICIDE
  2. VALPROIC ACID [Suspect]
     Indication: SUICIDAL IDEATION
     Route: 048
  3. ACETAMINOPHEN [Suspect]
     Indication: SUICIDAL IDEATION
     Route: 048
  4. ASPIRIN [Suspect]
     Indication: SUICIDAL IDEATION
     Route: 048
  5. TOPIRAMATE [Suspect]
     Indication: SUICIDAL IDEATION
     Route: 048
  6. DIAZEPAM [Suspect]
     Indication: SUICIDAL IDEATION
     Route: 048

REACTIONS (1)
  - COMPLETED SUICIDE [None]
